FAERS Safety Report 8052701-4 (Version None)
Quarter: 2012Q1

REPORT INFORMATION
  Report Type: 
  Country: None (occurrence: None)
  Receive Date: 20120118
  Receipt Date: 20120118
  Transmission Date: 20120608
  Serious: Yes (Other)
  Sender: FDA-Public Use
  Company Number: None

PATIENT
  Age: 28 Year
  Sex: Female
  Weight: 65.317 kg

DRUGS (1)
  1. KISS MY FACE LIQUID ROCK ROLL ON [Suspect]
     Route: 061
     Dates: start: 20110701, end: 20110701

REACTIONS (5)
  - PAIN [None]
  - PRURITUS [None]
  - CHEMICAL INJURY [None]
  - INFLAMMATION [None]
  - FUNGAL INFECTION [None]
